FAERS Safety Report 10438980 (Version 1)
Quarter: 2014Q3

REPORT INFORMATION
  Report Type: Spontaneous
  Country: US (occurrence: US)
  Receive Date: 20140908
  Receipt Date: 20140908
  Transmission Date: 20150326
  Serious: No
  Sender: FDA-Public Use
  Company Number: US-BRISTOL-MYERS SQUIBB COMPANY-19184928

PATIENT
  Age: 20 Year
  Sex: Female
  Weight: 76.19 kg

DRUGS (1)
  1. ABILIFY [Suspect]
     Active Substance: ARIPIPRAZOLE
     Indication: DEPRESSION
     Dosage: ABILIFY 10MG
     Dates: start: 20130808

REACTIONS (7)
  - Loss of consciousness [Unknown]
  - Blood pressure decreased [Unknown]
  - Hypoacusis [Unknown]
  - Gait disturbance [Unknown]
  - Dizziness [Unknown]
  - Dehydration [Unknown]
  - Visual impairment [Unknown]
